FAERS Safety Report 24538282 (Version 2)
Quarter: 2024Q4

REPORT INFORMATION
  Report Type: Report from Study
  Country: MX (occurrence: MX)
  Receive Date: 20241023
  Receipt Date: 20241206
  Transmission Date: 20250115
  Serious: Yes (Hospitalization, Other)
  Sender: TAKEDA
  Company Number: MX-TAKEDA-2024TUS022638

PATIENT
  Age: 15 Year
  Sex: Male
  Weight: 42 kg

DRUGS (1)
  1. IDURSULFASE [Suspect]
     Active Substance: IDURSULFASE
     Indication: Mucopolysaccharidosis II
     Dosage: 18 MILLIGRAM, 1/WEEK
     Dates: start: 20130601

REACTIONS (5)
  - Productive cough [Not Recovered/Not Resolved]
  - Pneumonia [Not Recovered/Not Resolved]
  - Respiratory distress [Not Recovered/Not Resolved]
  - Pyrexia [Unknown]
  - Treatment noncompliance [Not Recovered/Not Resolved]

NARRATIVE: CASE EVENT DATE: 20240301
